FAERS Safety Report 20884181 (Version 2)
Quarter: 2022Q2

REPORT INFORMATION
  Report Type: Spontaneous
  Country: US (occurrence: US)
  Receive Date: 20220527
  Receipt Date: 20220531
  Transmission Date: 20220721
  Serious: No
  Sender: FDA-Public Use
  Company Number: US-PFIZER INC-202200750038

PATIENT
  Age: 66 Year
  Sex: Female
  Weight: 112.04 kg

DRUGS (1)
  1. PAXLOVID [Suspect]
     Active Substance: NIRMATRELVIR\RITONAVIR
     Indication: COVID-19 treatment
     Dosage: 3 DF, 2X/DAY
     Dates: start: 20220512, end: 20220516

REACTIONS (12)
  - Dysgeusia [Not Recovered/Not Resolved]
  - Condition aggravated [Unknown]
  - Nausea [Unknown]
  - Ageusia [Unknown]
  - Decreased appetite [Unknown]
  - Asthenia [Unknown]
  - Nasal congestion [Not Recovered/Not Resolved]
  - Rhinorrhoea [Not Recovered/Not Resolved]
  - Constipation [Unknown]
  - Feeling cold [Unknown]
  - Hyperhidrosis [Unknown]
  - Cold sweat [Unknown]

NARRATIVE: CASE EVENT DATE: 20220501
